FAERS Safety Report 25270298 (Version 1)
Quarter: 2025Q2

REPORT INFORMATION
  Report Type: Spontaneous
  Country: FR (occurrence: FR)
  Receive Date: 20250505
  Receipt Date: 20250505
  Transmission Date: 20250716
  Serious: Yes (Hospitalization)
  Sender: MYLAN
  Company Number: FR-ATNAHS-ATNAHS20250201243

PATIENT
  Age: 14 Year
  Sex: Male

DRUGS (8)
  1. PREGABALIN [Suspect]
     Active Substance: PREGABALIN
     Indication: Product used for unknown indication
  2. VALIUM [Suspect]
     Active Substance: DIAZEPAM
     Indication: Disability
  3. VALIUM [Suspect]
     Active Substance: DIAZEPAM
     Indication: Alcohol withdrawal syndrome
  4. VALIUM [Suspect]
     Active Substance: DIAZEPAM
     Indication: Anxiety
  5. VALIUM [Suspect]
     Active Substance: DIAZEPAM
     Indication: Delirium tremens
  6. CLONAZEPAM [Suspect]
     Active Substance: CLONAZEPAM
     Indication: Product used for unknown indication
  7. CANNABIS SATIVA FLOWERING TOP [Suspect]
     Active Substance: CANNABIS SATIVA FLOWERING TOP
     Indication: Product used for unknown indication
  8. COCAINE [Suspect]
     Active Substance: COCAINE
     Indication: Product used for unknown indication
     Dosage: 2 GRAM, QD, 2 G, 1 IN 1 DAY
     Dates: start: 202311

REACTIONS (3)
  - Drug withdrawal maintenance therapy [Not Recovered/Not Resolved]
  - Drug dependence [Not Recovered/Not Resolved]
  - Somnolence [Recovered/Resolved]

NARRATIVE: CASE EVENT DATE: 20231101
